FAERS Safety Report 8796126 (Version 1)
Quarter: 2012Q4

REPORT INFORMATION
  Report Type: 
  Country: US (occurrence: US)
  Receive Date: 20120919
  Receipt Date: 20120919
  Transmission Date: 20130627
  Serious: Yes (Hospitalization)
  Sender: FDA-Public Use
  Company Number: US-SANOFI-AVENTIS-2012SA066213

PATIENT
  Sex: Female

DRUGS (3)
  1. AMBIEN [Suspect]
     Route: 065
  2. BUPRENORPHINE [Suspect]
     Route: 065
  3. PERCOCET [Suspect]
     Route: 065

REACTIONS (1)
  - Hospitalisation [Not Recovered/Not Resolved]
